FAERS Safety Report 8086961-0 (Version None)
Quarter: 2012Q1

REPORT INFORMATION
  Report Type: 
  Country: None (occurrence: None)
  Receive Date: 20120128
  Receipt Date: 20110519
  Transmission Date: 20120608
  Serious: No
  Sender: FDA-Public Use
  Company Number: US-ABBOTT-11P-163-0727423-00

PATIENT
  Sex: Female
  Weight: 72.64 kg

DRUGS (1)
  1. HUMIRA [Suspect]
     Indication: RHEUMATOID ARTHRITIS
     Route: 058
     Dates: start: 20110513, end: 20110519

REACTIONS (4)
  - FATIGUE [None]
  - DYSPNOEA [None]
  - BLOOD PRESSURE INCREASED [None]
  - OROPHARYNGEAL PAIN [None]
